FAERS Safety Report 7516947-3 (Version None)
Quarter: 2011Q2

REPORT INFORMATION
  Report Type: 
  Country: None (occurrence: None)
  Receive Date: 20110502
  Receipt Date: 20110113
  Transmission Date: 20111010
  Serious: Yes (Other)
  Sender: FDA-Public Use
  Company Number: AMAG201100005

PATIENT
  Age: 69 Year
  Sex: Male
  Weight: 136.5 kg

DRUGS (16)
  1. LANTUS [Concomitant]
  2. LISINOPRIL (LISINOPRIL DIHYDRATE) [Concomitant]
  3. ZETIA [Concomitant]
  4. HUMALOG [Concomitant]
  5. ALBUTEROL SULFATE AUTOHALER [Concomitant]
  6. SPIRIVA [Concomitant]
  7. FERAHEME [Suspect]
     Indication: IRON DEFICIENCY ANAEMIA
     Dosage: 510 MG, SINGLE, INTRAVENOUS
     Route: 042
     Dates: start: 20110113, end: 20110113
  8. COUMADIN [Concomitant]
  9. NOVOLOG [Concomitant]
  10. ADVAIR HFA [Concomitant]
  11. PLAVIX [Concomitant]
  12. POTASSIUM CHLORIDE [Concomitant]
  13. LASIX [Concomitant]
  14. LEVOTHYROXINE (LEVOTHYROXINE SODIIUM) [Concomitant]
  15. ZOCOR [Concomitant]
  16. ZOLPIDEM TARTRATE [Concomitant]

REACTIONS (2)
  - HYPERTENSION [None]
  - FLUSHING [None]
